FAERS Safety Report 17716162 (Version 2)
Quarter: 2020Q2

REPORT INFORMATION
  Report Type: Spontaneous
  Country: US (occurrence: US)
  Receive Date: 20200428
  Receipt Date: 20200612
  Transmission Date: 20200714
  Serious: No
  Sender: FDA-Public Use
  Company Number: US-UNITED THERAPEUTICS-UNT-2020-006139

PATIENT
  Age: 78 Year
  Sex: Female
  Weight: 42.63 kg

DRUGS (6)
  1. REMODULIN [Suspect]
     Active Substance: TREPROSTINIL
     Indication: PULMONARY ARTERIAL HYPERTENSION
     Dosage: UNK, CONTINUING
     Route: 041
     Dates: start: 20190114
  2. REMODULIN [Suspect]
     Active Substance: TREPROSTINIL
     Dosage: 0.064 ?G/KG, CONTINUING
     Route: 041
  3. DILTIAZEM. [Concomitant]
     Active Substance: DILTIAZEM
     Indication: PRODUCT USED FOR UNKNOWN INDICATION
     Dosage: UNK
     Route: 065
  4. REMODULIN [Suspect]
     Active Substance: TREPROSTINIL
     Dosage: 0.061 ?G/KG, CONTINUING
     Route: 041
  5. OPSUMIT [Concomitant]
     Active Substance: MACITENTAN
     Indication: PRODUCT USED FOR UNKNOWN INDICATION
     Dosage: UNK
     Route: 065
  6. REMODULIN [Suspect]
     Active Substance: TREPROSTINIL
     Indication: PULMONARY ARTERIAL HYPERTENSION
     Dosage: UNK, CONTINUING
     Route: 041
     Dates: start: 20200419

REACTIONS (8)
  - Asthenia [Unknown]
  - Nausea [Unknown]
  - Feeling abnormal [Unknown]
  - Dyspnoea exertional [Unknown]
  - Dyspnoea [Unknown]
  - Extra dose administered [Unknown]
  - Palpitations [Unknown]
  - Abdominal discomfort [Unknown]

NARRATIVE: CASE EVENT DATE: 202004
